FAERS Safety Report 24370339 (Version 1)
Quarter: 2024Q3

REPORT INFORMATION
  Report Type: Spontaneous
  Country: US (occurrence: US)
  Receive Date: 20240927
  Receipt Date: 20240927
  Transmission Date: 20241017
  Serious: No
  Sender: BIOGEN
  Company Number: US-BIOGEN-2024BI01283610

PATIENT
  Sex: Female

DRUGS (2)
  1. ZURZUVAE [Suspect]
     Active Substance: ZURANOLONE
     Indication: Product used for unknown indication
     Route: 050
  2. KLONOPIN [Concomitant]
     Active Substance: CLONAZEPAM
     Indication: Sleep disorder
     Route: 050

REACTIONS (1)
  - Therapeutic product effect delayed [Recovered/Resolved]
